FAERS Safety Report 18946869 (Version 1)
Quarter: 2021Q1

REPORT INFORMATION
  Report Type: Spontaneous
  Country: CA (occurrence: CA)
  Receive Date: 20210226
  Receipt Date: 20210226
  Transmission Date: 20210420
  Serious: Yes (Hospitalization, Other)
  Sender: FDA-Public Use
  Company Number: CA-SA-2021SA057208

PATIENT
  Sex: Male

DRUGS (4)
  1. INSULIN ASPART [Suspect]
     Active Substance: INSULIN ASPART
     Dosage: 0.56 UNIT/KG PER DAY,
  2. INSULIN GLARGINE [Suspect]
     Active Substance: INSULIN GLARGINE
     Dosage: TOTAL DOSE OF 0.6 UNIT/KG
  3. INSULIN ASPART [Suspect]
     Active Substance: INSULIN ASPART
     Dosage: TOTAL DOSE OF 0.6 UNIT/KG PER DAY
  4. INSULIN GLARGINE [Suspect]
     Active Substance: INSULIN GLARGINE
     Dosage: 0.56 UNIT/KG PER DAY

REACTIONS (12)
  - Periorbital oedema [Not Recovered/Not Resolved]
  - Face oedema [Not Recovered/Not Resolved]
  - Oedema [Not Recovered/Not Resolved]
  - Blood urea increased [Unknown]
  - Pericardial effusion [Unknown]
  - Eye oedema [Not Recovered/Not Resolved]
  - Abdominal distension [Unknown]
  - Swelling [Not Recovered/Not Resolved]
  - Ascites [Unknown]
  - Scrotal oedema [Not Recovered/Not Resolved]
  - Oedema peripheral [Not Recovered/Not Resolved]
  - Hydronephrosis [Unknown]
